FAERS Safety Report 8098032-8 (Version None)
Quarter: 2012Q1

REPORT INFORMATION
  Report Type: 
  Country: None (occurrence: None)
  Receive Date: 20120128
  Receipt Date: 20110726
  Transmission Date: 20120608
  Serious: No
  Sender: FDA-Public Use
  Company Number: US-ABBOTT-11P-163-0842048-00

PATIENT
  Age: 44 Year
  Sex: Female

DRUGS (13)
  1. SYNTHROID [Concomitant]
     Indication: PRODUCT USED FOR UNKNOWN INDICATION
  2. GEODON [Concomitant]
     Indication: DEPRESSION
     Dosage: AT BEDTIME
  3. PREDNISONE [Concomitant]
     Indication: PRODUCT USED FOR UNKNOWN INDICATION
  4. TRAMADOL HCL [Concomitant]
     Indication: PAIN
  5. BENTYL [Concomitant]
     Indication: MUSCLE SPASMS
  6. PHENERGAN [Concomitant]
     Indication: NAUSEA
  7. VITAMIN B-12 [Concomitant]
     Indication: PRODUCT USED FOR UNKNOWN INDICATION
  8. SAVELLA [Concomitant]
     Indication: PRODUCT USED FOR UNKNOWN INDICATION
  9. AMBIEN [Concomitant]
     Indication: PRODUCT USED FOR UNKNOWN INDICATION
     Dosage: AT BEDTIME
  10. HUMIRA [Suspect]
     Indication: CROHN'S DISEASE
     Dosage: LOADING DOSE
     Dates: start: 20110722
  11. PERCOCET [Concomitant]
     Indication: PAIN
     Dosage: 10/650MG, ONCE EVERY 4 HOURS
  12. XANAX [Concomitant]
     Indication: ANXIETY
  13. WELLBUTRIN SR [Concomitant]
     Indication: DEPRESSION
     Dosage: 2 IN THE MORNING, 1 IN THE EVENING

REACTIONS (3)
  - INJECTION SITE PRURITUS [None]
  - NAUSEA [None]
  - INJECTION SITE RASH [None]
